FAERS Safety Report 15316342 (Version 1)
Quarter: 2018Q3

REPORT INFORMATION
  Report Type: Spontaneous
  Country: US (occurrence: US)
  Receive Date: 20180824
  Receipt Date: 20180824
  Transmission Date: 20181010
  Serious: No
  Sender: FDA-Public Use
  Company Number: US-UGNX-E2B_00000109

PATIENT
  Age: 8 Year
  Sex: Female

DRUGS (2)
  1. CRYSVITA [Suspect]
     Active Substance: BUROSUMAB-TWZA
     Dosage: 40 MG
     Route: 058
     Dates: start: 20180626, end: 20180626
  2. CRYSVITA [Suspect]
     Active Substance: BUROSUMAB-TWZA
     Indication: HYPOPHOSPHATAEMIA
     Dosage: 20 MG, EVERY 2 WEEKS
     Route: 058
     Dates: start: 20180614

REACTIONS (1)
  - Wrong dose [Recovered/Resolved]

NARRATIVE: CASE EVENT DATE: 20180626
